FAERS Safety Report 12409335 (Version 1)
Quarter: 2016Q2

REPORT INFORMATION
  Report Type: Spontaneous
  Country: FR (occurrence: FR)
  Receive Date: 20160526
  Receipt Date: 20160526
  Transmission Date: 20160815
  Serious: Yes (Death, Hospitalization, Other)
  Sender: FDA-Public Use
  Company Number: FR-MDT-ADR-2016-00958

PATIENT
  Age: 53 Year
  Sex: Male

DRUGS (4)
  1. LOPRESSOR [Suspect]
     Active Substance: METOPROLOL TARTRATE
  2. COVERSYL (PERIDOPRIL ARGININE) [Suspect]
     Active Substance: PERINDOPRIL
  3. SEROPLEX (ESCITALOPRAM OXALATE) [Suspect]
     Active Substance: ESCITALOPRAM OXALATE
  4. BACLOFEN. [Suspect]
     Active Substance: BACLOFEN

REACTIONS (4)
  - Drug screen positive [Fatal]
  - Toxicity to various agents [Fatal]
  - Cardiac arrest [Fatal]
  - Coma [Fatal]
